FAERS Safety Report 7103324-2 (Version None)
Quarter: 2010Q4

REPORT INFORMATION
  Report Type: 
  Country: None (occurrence: None)
  Receive Date: 20101115
  Receipt Date: 20101103
  Transmission Date: 20110411
  Serious: Yes (Other)
  Sender: FDA-Public Use
  Company Number: PHHY2010NL72120

PATIENT
  Sex: Male

DRUGS (5)
  1. ZOMETA [Suspect]
     Dosage: 4MG/5ML, UNK
     Dates: start: 20100603, end: 20101103
  2. ZOMETA [Suspect]
     Dosage: UNK
     Dates: start: 20100927
  3. ZOMETA [Suspect]
     Dosage: UNK
     Dates: start: 20101026
  4. ELIGARD [Suspect]
     Dosage: ONCE EVERY 6 MONTHS
  5. BICALUTAMIDE [Concomitant]
     Dosage: 1 DF, DAILY

REACTIONS (11)
  - ARTHRALGIA [None]
  - BONE PAIN [None]
  - DRY MOUTH [None]
  - FLUSHING [None]
  - HYPERHIDROSIS [None]
  - MASTICATION DISORDER [None]
  - PAIN IN JAW [None]
  - TOOTH EXTRACTION [None]
  - VISUAL FIELD DEFECT [None]
  - VISUAL IMPAIRMENT [None]
  - WEIGHT DECREASED [None]
